FAERS Safety Report 25576948 (Version 1)
Quarter: 2025Q3

REPORT INFORMATION
  Report Type: Spontaneous
  Country: TH (occurrence: TH)
  Receive Date: 20250718
  Receipt Date: 20250718
  Transmission Date: 20251021
  Serious: Yes (Other)
  Sender: PFIZER
  Company Number: TH-PFIZER INC-PV202500085929

PATIENT
  Age: 48 Year
  Sex: Female

DRUGS (1)
  1. LORLATINIB [Suspect]
     Active Substance: LORLATINIB
     Indication: Non-small cell lung cancer
     Dosage: 75 MG (25 MG 3 TABS) 1 TIME A DAY
     Route: 048
     Dates: start: 20250417, end: 20250622

REACTIONS (2)
  - Hallucination [Recovering/Resolving]
  - Decreased appetite [Recovering/Resolving]
